FAERS Safety Report 6074455-3 (Version None)
Quarter: 2009Q1

REPORT INFORMATION
  Report Type: 
  Country: None (occurrence: None)
  Receive Date: 20090206
  Receipt Date: 20090110
  Transmission Date: 20090719
  Serious: Yes (Other)
  Sender: FDA-Public Use
  Company Number: CIR-DE-095-09

PATIENT
  Age: 66 Year
  Sex: Female
  Weight: 60 kg

DRUGS (1)
  1. CIRCADIN (MELATONIN) [Suspect]
     Indication: INTENTIONAL OVERDOSE
     Dosage: 15 TABLETS AT LEAST, ORAL
     Route: 048
     Dates: start: 20090110, end: 20090110

REACTIONS (3)
  - INTENTIONAL OVERDOSE [None]
  - SUICIDE ATTEMPT [None]
  - VOMITING [None]
